FAERS Safety Report 24311268 (Version 1)
Quarter: 2024Q3

REPORT INFORMATION
  Report Type: Spontaneous
  Country: US (occurrence: US)
  Receive Date: 20240912
  Receipt Date: 20240912
  Transmission Date: 20241017
  Serious: Yes (Other)
  Sender: PAREXEL
  Company Number: US-NOVEN PHARMACEUTICALS, INC.-2024-NOV-US000679

PATIENT
  Age: 47 Year
  Sex: Female
  Weight: 77.098 kg

DRUGS (2)
  1. COMBIPATCH [Suspect]
     Active Substance: ESTRADIOL\NORETHINDRONE ACETATE
     Indication: Menopausal symptoms
     Dosage: HALF OF 0.05/0.14 MG PATCH, 2/WEEK (EVERY SUNDAY AND THURSDAY)
     Route: 062
     Dates: start: 20231222, end: 20240522
  2. COMBIPATCH [Suspect]
     Active Substance: ESTRADIOL\NORETHINDRONE ACETATE
     Indication: Off label use

REACTIONS (3)
  - Pulmonary embolism [Recovering/Resolving]
  - Pain in extremity [Recovered/Resolved]
  - Off label use [Recovered/Resolved]

NARRATIVE: CASE EVENT DATE: 20231222
